FAERS Safety Report 24165162 (Version 1)
Quarter: 2024Q3

REPORT INFORMATION
  Report Type: Spontaneous
  Country: US (occurrence: US)
  Receive Date: 20240802
  Receipt Date: 20240802
  Transmission Date: 20241016
  Serious: No
  Sender: ELI LILLY AND CO
  Company Number: US-ELI_LILLY_AND_COMPANY-US202407019596

PATIENT
  Age: 83 Year
  Sex: Male

DRUGS (5)
  1. BASAGLAR [Suspect]
     Active Substance: INSULIN GLARGINE
     Indication: Type 2 diabetes mellitus
     Dosage: 24 U, EACH EVENING (AT NIGHT)
     Route: 065
     Dates: start: 202403
  2. BASAGLAR [Suspect]
     Active Substance: INSULIN GLARGINE
     Indication: Type 2 diabetes mellitus
     Dosage: 24 U, EACH EVENING (AT NIGHT)
     Route: 065
     Dates: start: 202403
  3. BASAGLAR [Suspect]
     Active Substance: INSULIN GLARGINE
     Dosage: 17 U, EACH EVENING (AT NIGHT)
     Route: 065
     Dates: start: 202403
  4. BASAGLAR [Suspect]
     Active Substance: INSULIN GLARGINE
     Dosage: 17 U, EACH EVENING (AT NIGHT)
     Route: 065
     Dates: start: 202403
  5. HUMALOG [Suspect]
     Active Substance: INSULIN LISPRO
     Indication: Type 2 diabetes mellitus
     Dosage: UNK UNK, UNKNOWN
     Route: 065

REACTIONS (2)
  - Blood glucose increased [Unknown]
  - Accidental underdose [Unknown]

NARRATIVE: CASE EVENT DATE: 20240729
